FAERS Safety Report 16206547 (Version 1)
Quarter: 2019Q2

REPORT INFORMATION
  Report Type: Spontaneous
  Country: GB (occurrence: GB)
  Receive Date: 20190417
  Receipt Date: 20190417
  Transmission Date: 20190711
  Serious: Yes (Other)
  Sender: FDA-Public Use
  Company Number: GB-TEVA-2019-GB-1038099

PATIENT
  Age: 85 Year
  Sex: Female
  Weight: 50.8 kg

DRUGS (9)
  1. PARACETAMOL [Concomitant]
     Active Substance: ACETAMINOPHEN
  2. HYPROMELLOSE [Concomitant]
     Active Substance: HYPROMELLOSES
  3. ALENDRONATE SODIUM. [Suspect]
     Active Substance: ALENDRONATE SODIUM
     Indication: BONE DENSITY ABNORMAL
  4. GAVISCON ADVANCE [Concomitant]
     Active Substance: POTASSIUM BICARBONATE\SODIUM ALGINATE
  5. LANSOPRAZOLE. [Concomitant]
     Active Substance: LANSOPRAZOLE
  6. ADCAL-D3 [Suspect]
     Active Substance: CALCIUM CARBONATE\CHOLECALCIFEROL
     Indication: BONE DENSITY ABNORMAL
     Dosage: 2 DOSAGE FORMS DAILY;
     Route: 048
     Dates: start: 20190215
  7. THYROXINE [Concomitant]
     Active Substance: LEVOTHYROXINE
  8. MOVICOL [Concomitant]
     Active Substance: POLYETHYLENE GLYCOL 3350\POTASSIUM CHLORIDE\SODIUM BICARBONATE\SODIUM CHLORIDE
  9. FELODIPINE. [Concomitant]
     Active Substance: FELODIPINE

REACTIONS (2)
  - Nasal dryness [Unknown]
  - Dry throat [Unknown]

NARRATIVE: CASE EVENT DATE: 20190216
